FAERS Safety Report 10003856 (Version 2)
Quarter: 2014Q2

REPORT INFORMATION
  Report Type: Spontaneous
  Country: US (occurrence: US)
  Receive Date: 20140312
  Receipt Date: 20140611
  Transmission Date: 20141212
  Serious: No
  Sender: FDA-Public Use
  Company Number: US-INCYTE CORPORATION-2014IN000113

PATIENT
  Age: 84 Year
  Sex: Male

DRUGS (11)
  1. JAKAFI [Suspect]
     Indication: MYELOFIBROSIS
     Dosage: 7.5 MG, BID
     Route: 048
     Dates: start: 20131214
  2. JAKAFI [Suspect]
     Dosage: 15 MG, BID
     Route: 048
     Dates: start: 20140111
  3. JAKAFI [Suspect]
     Dosage: 7.5 MG, BID
     Route: 048
     Dates: start: 201402
  4. OMEPRAZOLE [Concomitant]
  5. VALSARTAN [Concomitant]
  6. KLOR-CON [Concomitant]
  7. FISH OIL [Concomitant]
  8. HYDROCODONE [Concomitant]
  9. FLOVENT [Concomitant]
  10. VITAMINS WITH MINERALS [Concomitant]
  11. HEADACHE POWDER [Concomitant]

REACTIONS (10)
  - Blood pressure increased [Unknown]
  - Ear congestion [Unknown]
  - Arthralgia [Unknown]
  - Abdominal pain [Unknown]
  - Thinking abnormal [Unknown]
  - Drug dispensing error [Unknown]
  - Epistaxis [Unknown]
  - Contusion [Unknown]
  - Haemoglobin decreased [Unknown]
  - White blood cell count decreased [None]
